FAERS Safety Report 6802176-5 (Version None)
Quarter: 2010Q2

REPORT INFORMATION
  Report Type: 
  Country: None (occurrence: None)
  Receive Date: 20100629
  Receipt Date: 20080303
  Transmission Date: 20101027
  Serious: No
  Sender: FDA-Public Use
  Company Number: US-PFIZER INC-2007016669

PATIENT
  Sex: Male

DRUGS (8)
  1. VIAGRA [Suspect]
     Dates: start: 20070101
  2. FLOMAX [Concomitant]
  3. COREG [Concomitant]
  4. NORVASC [Concomitant]
  5. PRILOSEC [Concomitant]
  6. TRICOR [Concomitant]
  7. FOLIC ACID [Concomitant]
  8. DIOVANE [Concomitant]

REACTIONS (4)
  - DRUG INEFFECTIVE [None]
  - EJACULATION FAILURE [None]
  - ERECTILE DYSFUNCTION [None]
  - PALPITATIONS [None]
